FAERS Safety Report 24199214 (Version 6)
Quarter: 2024Q4

REPORT INFORMATION
  Report Type: Report from Study
  Country: DE (occurrence: DE)
  Receive Date: 20240812
  Receipt Date: 20241002
  Transmission Date: 20250115
  Serious: Yes (Hospitalization, Other)
  Sender: UCB
  Company Number: DE-UCBSA-2024040086

PATIENT
  Sex: Female
  Weight: 106 kg

DRUGS (1)
  1. ROZANOLIXIZUMAB [Suspect]
     Active Substance: ROZANOLIXIZUMAB
     Indication: Myasthenia gravis
     Dosage: 840 MILLIGRAM, WEEKLY (QW)
     Route: 058
     Dates: start: 20240724, end: 20240828

REACTIONS (14)
  - Headache [Recovered/Resolved]
  - Lacrimation increased [Recovered/Resolved]
  - Asthenopia [Recovered/Resolved]
  - Photophobia [Recovering/Resolving]
  - Myocardial infarction [Not Recovered/Not Resolved]
  - Dysphagia [Recovered/Resolved]
  - Myasthenia gravis crisis [Not Recovered/Not Resolved]
  - Heart rate increased [Recovered/Resolved]
  - Fatigue [Recovering/Resolving]
  - Cardiovascular disorder [Not Recovered/Not Resolved]
  - Asthenia [Recovering/Resolving]
  - Muscular weakness [Recovering/Resolving]
  - Weight decreased [Unknown]
  - Product dose omission issue [Unknown]

NARRATIVE: CASE EVENT DATE: 20240101
